FAERS Safety Report 25262921 (Version 1)
Quarter: 2025Q2

REPORT INFORMATION
  Report Type: Spontaneous
  Country: US (occurrence: None)
  Receive Date: 20250501
  Receipt Date: 20250501
  Transmission Date: 20250716
  Serious: No
  Sender: FDA-CTU
  Company Number: None

PATIENT
  Age: 38 Year
  Sex: Male
  Weight: 66 kg

DRUGS (1)
  1. FLUOXETINE HCL [Suspect]
     Active Substance: FLUOXETINE
     Indication: Depression
     Dates: start: 20250124, end: 20250128

REACTIONS (2)
  - Hallucination [None]
  - Psychotic disorder [None]

NARRATIVE: CASE EVENT DATE: 20250203
